FAERS Safety Report 9304077 (Version 1)
Quarter: 2013Q1

REPORT INFORMATION
  Report Type: Spontaneous
  Country: US (occurrence: None)
  Receive Date: 20130103
  Receipt Date: 20130103
  Transmission Date: 20140127
  Serious: Yes (Hospitalization)
  Sender: FDA-Public Use
  Company Number: 2012SP004798

PATIENT
  Age: 58 Year
  Sex: Male
  Weight: 57.75 kg

DRUGS (7)
  1. FLUOROURACIL [Suspect]
     Indication: PANCREATIC CARCINOMA
     Route: 040
     Dates: start: 20121126, end: 20121212
  2. FLUOROURACIL [Suspect]
     Indication: PANCREATIC CARCINOMA
     Route: 040
     Dates: start: 20121126, end: 20121212
  3. FLUOROURACIL [Suspect]
     Indication: PANCREATIC CARCINOMA
     Route: 040
     Dates: start: 20121126, end: 20121212
  4. FLUOROURACIL [Suspect]
     Indication: PANCREATIC CARCINOMA
     Route: 040
     Dates: start: 20121126, end: 20121212
  5. OXALIPLATIN [Suspect]
  6. IRINOTECAN [Suspect]
  7. FOLINIC ACID [Suspect]

REACTIONS (2)
  - Pancreatitis [None]
  - Hypokalaemia [None]
